FAERS Safety Report 21358231 (Version 3)
Quarter: 2022Q4

REPORT INFORMATION
  Report Type: Other
  Country: US (occurrence: None)
  Receive Date: 20220921
  Receipt Date: 20221028
  Transmission Date: 20230113
  Serious: Yes (Hospitalization, Other)
  Sender: FDA-Public Use
  Company Number: US-ROCHE-3101435

PATIENT
  Age: 60 Year
  Sex: Male
  Weight: 97.610 kg

DRUGS (12)
  1. OCREVUS [Suspect]
     Active Substance: OCRELIZUMAB
     Indication: Secondary progressive multiple sclerosis
     Dosage: ONGOING-YES: PRESCRIBED AS 300 MG DAY 1 AND DAY 15 THEN 600 MG EVERY 6 MONTHS, DATE OF TREATMENT: 19
     Route: 042
     Dates: start: 20211005
  2. OCREVUS [Suspect]
     Active Substance: OCRELIZUMAB
     Indication: Primary progressive multiple sclerosis
  3. ASPIRIN [Concomitant]
     Active Substance: ASPIRIN
  4. PLAVIX [Concomitant]
     Active Substance: CLOPIDOGREL BISULFATE
  5. VENLAFAXINE [Concomitant]
     Active Substance: VENLAFAXINE HYDROCHLORIDE
  6. PRIMIDONE [Concomitant]
     Active Substance: PRIMIDONE
  7. ATORVASTATIN [Concomitant]
     Active Substance: ATORVASTATIN
  8. BUPROPION [Concomitant]
     Active Substance: BUPROPION
  9. PREGABALIN [Concomitant]
     Active Substance: PREGABALIN
  10. HYDRALAZINE [Concomitant]
     Active Substance: HYDRALAZINE HYDROCHLORIDE
  11. TAMSULOSIN [Concomitant]
     Active Substance: TAMSULOSIN
  12. CLOPIDOGREL [Concomitant]
     Active Substance: CLOPIDOGREL BISULFATE

REACTIONS (10)
  - Multiple sclerosis [Not Recovered/Not Resolved]
  - Urinary tract infection [Not Recovered/Not Resolved]
  - Wrist fracture [Recovered/Resolved]
  - Cerebral atrophy [Not Recovered/Not Resolved]
  - Nephrolithiasis [Unknown]
  - Spondylitis [Unknown]
  - Amnesia [Not Recovered/Not Resolved]
  - Fall [Unknown]
  - Osteogenesis imperfecta [Unknown]
  - Dementia [Not Recovered/Not Resolved]

NARRATIVE: CASE EVENT DATE: 20220101
